FAERS Safety Report 17070071 (Version 1)
Quarter: 2019Q4

REPORT INFORMATION
  Report Type: Report from Study
  Country: IT (occurrence: IT)
  Receive Date: 20191125
  Receipt Date: 20191125
  Transmission Date: 20200122
  Serious: Yes (Hospitalization)
  Sender: FDA-Public Use
  Company Number: IT-TEVA-2019-IT-1140324

PATIENT
  Age: 53 Year
  Sex: Female

DRUGS (2)
  1. ALPRAZOLAM. [Suspect]
     Active Substance: ALPRAZOLAM
     Indication: PSYCHOTIC DISORDER
     Dosage: 20 MG
     Route: 048
  2. SODIO VALPROATO/ACIDO VALPROICO [Concomitant]
     Active Substance: VALPROATE SODIUM

REACTIONS (2)
  - Toxicity to various agents [Unknown]
  - Sopor [Unknown]

NARRATIVE: CASE EVENT DATE: 20190902
